FAERS Safety Report 7878834-0 (Version None)
Quarter: 2011Q4

REPORT INFORMATION
  Report Type: 
  Country: None (occurrence: None)
  Receive Date: 20111024
  Receipt Date: 20110815
  Transmission Date: 20120403
  Serious: Yes (Other)
  Sender: FDA-Public Use
  Company Number: AMAG201100179

PATIENT

DRUGS (1)
  1. FERAHEME [Suspect]
     Indication: IRON DEFICIENCY ANAEMIA
     Dosage: 30 MG, SINGLE, INTRAVENOUS
     Route: 042
     Dates: start: 20110714, end: 20110714

REACTIONS (4)
  - CHEST PAIN [None]
  - BACK PAIN [None]
  - OXYGEN SATURATION DECREASED [None]
  - BLOOD PRESSURE DECREASED [None]
